FAERS Safety Report 20083314 (Version 3)
Quarter: 2022Q1

REPORT INFORMATION
  Report Type: Spontaneous
  Country: US (occurrence: US)
  Receive Date: 20211117
  Receipt Date: 20220131
  Transmission Date: 20220423
  Serious: Yes (Other)
  Sender: FDA-Public Use
  Company Number: US-GLENMARK PHARMACEUTICALS-2021GMK068788

PATIENT

DRUGS (1)
  1. DILTIAZEM HYDROCHLORIDE [Suspect]
     Active Substance: DILTIAZEM HYDROCHLORIDE
     Indication: Hypertension
     Dosage: 90 MILLIGRAM, OD
     Route: 048
     Dates: start: 20210715

REACTIONS (3)
  - Diverticulitis [Unknown]
  - Drug intolerance [Unknown]
  - Product substitution issue [Unknown]
